FAERS Safety Report 8581063-9 (Version None)
Quarter: 2012Q2

REPORT INFORMATION
  Report Type: 
  Country: None (occurrence: None)
  Receive Date: 20120423
  Receipt Date: 20101006
  Transmission Date: 20120825
  Serious: Yes (Other)
  Sender: FDA-Public Use
  Company Number: PHHY2010US23014

PATIENT
  Age: 56 Year
  Sex: Female
  Weight: 79.6 kg

DRUGS (9)
  1. EXJADE [Suspect]
     Indication: IRON METABOLISM DISORDER
     Dosage: 1750 MG/DAY, ORAL
     Route: 048
     Dates: start: 20100331
  2. KALETRA [Concomitant]
  3. TRUVADA TM (EMTRICITABINE, TENOFOVIR DISOPROXIIL FUMARATE) [Concomitant]
  4. ARIMIDEX [Concomitant]
  5. SUSTIVA [Concomitant]
  6. COUMADIN [Concomitant]
  7. DRAMAMINE [Concomitant]
  8. COREG [Concomitant]
  9. CRESTOR [Concomitant]

REACTIONS (2)
  - SOMNOLENCE [None]
  - SICKLE CELL ANAEMIA WITH CRISIS [None]
